FAERS Safety Report 9187912 (Version 1)
Quarter: 2013Q1

REPORT INFORMATION
  Report Type: Report from Study
  Country: IT (occurrence: IT)
  Receive Date: 20130325
  Receipt Date: 20130325
  Transmission Date: 20140127
  Serious: Yes (Other)
  Sender: FDA-Public Use
  Company Number: IT-ROCHE-1204251

PATIENT
  Sex: 0

DRUGS (2)
  1. CAPECITABINE [Suspect]
     Indication: BREAST CANCER METASTATIC
     Route: 065
  2. VINORELBINE [Suspect]
     Indication: BREAST CANCER METASTATIC
     Dosage: ON DAY 1 + 8
     Route: 048

REACTIONS (1)
  - Skin toxicity [Unknown]
